FAERS Safety Report 4845535-2 (Version None)
Quarter: 2005Q4

REPORT INFORMATION
  Report Type: 
  Country: None (occurrence: None)
  Receive Date: 20051201
  Receipt Date: 20051121
  Transmission Date: 20060501
  Serious: Yes (Other)
  Sender: FDA-Public Use
  Company Number: HQWYE701123NOV05

PATIENT
  Sex: Female

DRUGS (1)
  1. ADVIL [Suspect]
     Dosage: ORAL
     Route: 048

REACTIONS (5)
  - NERVE INJURY [None]
  - NONSPECIFIC REACTION [None]
  - RASH PAPULAR [None]
  - RASH PRURITIC [None]
  - VOCAL CORD PARALYSIS [None]
